FAERS Safety Report 17244889 (Version 2)
Quarter: 2020Q3

REPORT INFORMATION
  Report Type: Report from Study
  Country: ES (occurrence: ES)
  Receive Date: 20200108
  Receipt Date: 20200731
  Transmission Date: 20201102
  Serious: Yes (Other)
  Sender: FDA-Public Use
  Company Number: ES-TEVA-2020-ES-1164419

PATIENT
  Age: 65 Year
  Sex: Female

DRUGS (4)
  1. PEGASYS [Suspect]
     Active Substance: PEGINTERFERON ALFA-2A
     Indication: HEPATITIS C
     Dosage: 180 MICROGRAM, DOSAGE UNIT FREQUENCY: 180 MICROG?MICROGRAMS, SERVING DOSE: 180 MICROG?MICROGRAMS, NO
     Route: 065
     Dates: start: 20120201, end: 20120307
  2. FUROSEMIDA [Concomitant]
     Active Substance: FUROSEMIDE
     Indication: DIURETIC THERAPY
     Dosage: 40 MILLIGRAM DAILY; ? DOSAGE UNIT FREQUENCY: 40 MG?MILLIGRAMS,  SERVING DOSE: 40 MG?MILLIGRAMS, NO.
     Route: 048
     Dates: start: 20120307
  3. RIBAVIRINA [Suspect]
     Active Substance: RIBAVIRIN
     Indication: HEPATITIS C
     Dosage: 1200 MILLIGRAM DAILY;  DOSAGE UNIT FREQUENCY: 1200 MG?MILLIGRAMS,  SERVING DOSE: 1200 MG?MILLIGRAMS,
     Route: 065
     Dates: start: 20120201, end: 20120307
  4. VICTRELIS [Suspect]
     Active Substance: BOCEPREVIR
     Indication: HEPATITIS C
     Dosage: 2400 MILLIGRAM DAILY; DOSAGE UNIT FREQUENCY: 2400 MG?MILLIGRAMS, SERVING DOSE: 2400 MG?MILLIGRAMS,
     Route: 065
     Dates: start: 20120302, end: 20120307

REACTIONS (4)
  - Oedema [Unknown]
  - Fluid retention [Recovered/Resolved]
  - Hyponatraemia [Unknown]
  - Anaemia [Recovered/Resolved]

NARRATIVE: CASE EVENT DATE: 2012
